FAERS Safety Report 10973348 (Version 1)
Quarter: 2015Q1

REPORT INFORMATION
  Report Type: Spontaneous
  Country: US (occurrence: None)
  Receive Date: 20150331
  Receipt Date: 20150331
  Transmission Date: 20150721
  Serious: Yes (Disabling)
  Sender: FDA-Public Use
  Company Number: None

PATIENT
  Age: 36 Year
  Weight: 55.79 kg

DRUGS (6)
  1. NETI POT [Concomitant]
  2. MAGNESIUM [Concomitant]
     Active Substance: MAGNESIUM
  3. FISH OIL [Concomitant]
     Active Substance: FISH OIL
  4. FLONASE [Suspect]
     Active Substance: FLUTICASONE PROPIONATE
     Indication: EUSTACHIAN TUBE DYSFUNCTION
     Dosage: 1 SPRAY IN EACH NOSTRIL
     Route: 055
     Dates: start: 20150320, end: 20150321
  5. TURMERIC [Concomitant]
     Active Substance: TURMERIC
  6. GNC MULTI-VITAMIN [Concomitant]

REACTIONS (8)
  - Heart rate irregular [None]
  - Gastric disorder [None]
  - Anxiety [None]
  - Appetite disorder [None]
  - Depression [None]
  - Headache [None]
  - Panic attack [None]
  - Heart rate increased [None]

NARRATIVE: CASE EVENT DATE: 20150321
